FAERS Safety Report 13243330 (Version 1)
Quarter: 2017Q1

REPORT INFORMATION
  Report Type: Spontaneous
  Country: JP (occurrence: JP)
  Receive Date: 20170217
  Receipt Date: 20170217
  Transmission Date: 20170428
  Serious: Yes (Other)
  Sender: FDA-Public Use
  Company Number: JP-PFIZER INC-2017067829

PATIENT

DRUGS (2)
  1. CRAVIT [Suspect]
     Active Substance: LEVOFLOXACIN
     Dosage: UNK
  2. ZOSYN [Suspect]
     Active Substance: PIPERACILLIN SODIUM\TAZOBACTAM SODIUM
     Dosage: UNK
     Route: 042

REACTIONS (2)
  - Cholestasis [Unknown]
  - Gamma-glutamyltransferase increased [Unknown]
